FAERS Safety Report 10404336 (Version 2)
Quarter: 2014Q2

REPORT INFORMATION
  Report Type: Spontaneous
  Country: US (occurrence: None)
  Receive Date: 20140228
  Receipt Date: 20140530
  Transmission Date: 20141212
  Serious: No
  Sender: FDA-Public Use
  Company Number: 225128 LEO

PATIENT
  Sex: Male

DRUGS (1)
  1. PICATO (INGENOL MEBUTATE) (0.015 %) [Suspect]
     Indication: PRODUCT USED FOR UNKNOWN INDICATION
     Route: 061

REACTIONS (6)
  - Incorrect product storage [None]
  - Drug ineffective [None]
  - Oropharyngeal pain [None]
  - Application site exfoliation [None]
  - Drug administered at inappropriate site [None]
  - Multiple use of single-use product [None]
